FAERS Safety Report 11008094 (Version 3)
Quarter: 2015Q2

REPORT INFORMATION
  Report Type: Spontaneous
  Country: US (occurrence: US)
  Receive Date: 20150410
  Receipt Date: 20150517
  Transmission Date: 20150821
  Serious: Yes (Hospitalization)
  Sender: FDA-Public Use
  Company Number: US-MERCK-1504USA003212

PATIENT
  Age: 50 Year
  Sex: Male

DRUGS (8)
  1. NOXAFIL [Suspect]
     Active Substance: POSACONAZOLE
     Indication: BACTERIAL INFECTION
  2. COMPAZINE [Concomitant]
     Active Substance: PROCHLORPERAZINE MALEATE
     Dosage: UNK
  3. ACYCLOVIR. [Concomitant]
     Active Substance: ACYCLOVIR
     Dosage: UNK
  4. CIPRO [Concomitant]
     Active Substance: CIPROFLOXACIN HYDROCHLORIDE
     Dosage: UNK
  5. OXYCODONE [Concomitant]
     Active Substance: OXYCODONE
     Dosage: 5 MG Q4HR, PRN
     Route: 048
  6. NOXAFIL [Suspect]
     Active Substance: POSACONAZOLE
     Indication: FUNGAL INFECTION
     Dosage: 3 TABLETS, ONCE DAILY
     Route: 048
     Dates: start: 201410
  7. DIPHENHYDRAMINE HYDROCHLORIDE (+) LIDOCAINE (+) NYSTATIN [Concomitant]
     Dosage: UNK, QID
     Route: 061
  8. PHENYLEPHRINE [Concomitant]
     Active Substance: PHENYLEPHRINE\PHENYLEPHRINE HYDROCHLORIDE
     Dosage: 1 APP, BID
     Route: 054

REACTIONS (6)
  - Haematocrit decreased [Unknown]
  - Platelet count abnormal [Unknown]
  - White blood cell count decreased [Recovered/Resolved]
  - Red blood cell count decreased [Unknown]
  - Chronic obstructive pulmonary disease [Unknown]
  - Haemoglobin decreased [Unknown]

NARRATIVE: CASE EVENT DATE: 2014
